FAERS Safety Report 4728449-8 (Version None)
Quarter: 2005Q3

REPORT INFORMATION
  Report Type: 
  Country: None (occurrence: None)
  Receive Date: 20050727
  Receipt Date: 20050325
  Transmission Date: 20060218
  Serious: Yes (Other)
  Sender: FDA-Public Use
  Company Number: 2005BI006537

PATIENT
  Age: 44 Year
  Sex: Female

DRUGS (1)
  1. AVONEX [Suspect]
     Indication: MULTIPLE SCLEROSIS
     Dosage: 30 UG;QW; IM
     Route: 030
     Dates: start: 20040810

REACTIONS (9)
  - AMNESIA [None]
  - CRUSH INJURY [None]
  - INCREASED TENDENCY TO BRUISE [None]
  - INTERVERTEBRAL DISC INJURY [None]
  - MALAISE [None]
  - STRESS [None]
  - SUICIDE ATTEMPT [None]
  - THINKING ABNORMAL [None]
  - VISUAL ACUITY REDUCED [None]
